FAERS Safety Report 14627172 (Version 4)
Quarter: 2018Q2

REPORT INFORMATION
  Report Type: Spontaneous
  Country: ZA (occurrence: ZA)
  Receive Date: 20180312
  Receipt Date: 20180619
  Transmission Date: 20180711
  Serious: Yes (Other)
  Sender: FDA-Public Use
  Company Number: ZA-SA-2018SA042820

PATIENT
  Sex: Male

DRUGS (2)
  1. OPTISULIN [INSULIN GLARGINE] [Concomitant]
  2. APIDRA SOLOSTAR [Suspect]
     Active Substance: INSULIN GLULISINE
     Dosage: UNK UNK,UNK
     Route: 058

REACTIONS (4)
  - Device issue [Unknown]
  - Cellulitis [Unknown]
  - Injection site abscess [Unknown]
  - Hyperglycaemia [Unknown]
